FAERS Safety Report 4385306-7 (Version None)
Quarter: 2004Q2

REPORT INFORMATION
  Report Type: 
  Country: None (occurrence: None)
  Receive Date: 20040624
  Receipt Date: 20040624
  Transmission Date: 20050107
  Serious: No
  Sender: FDA-Public Use
  Company Number: None

PATIENT
  Age: 63 Year
  Sex: Male

DRUGS (3)
  1. INTEGRILIN [Suspect]
     Indication: MYOCARDIAL INFARCTION
     Dates: end: 20040425
  2. HEPARIN [Suspect]
  3. TNKASE [Suspect]

REACTIONS (3)
  - ASPIRATION [None]
  - HAEMORRHAGE INTRACRANIAL [None]
  - RESPIRATORY DISTRESS [None]
